FAERS Safety Report 6762326-6 (Version None)
Quarter: 2010Q2

REPORT INFORMATION
  Report Type: 
  Country: None (occurrence: None)
  Receive Date: 20100609
  Receipt Date: 20100527
  Transmission Date: 20101027
  Serious: Yes (Death)
  Sender: FDA-Public Use
  Company Number: ZA-GENZYME-CLOF-1000988

PATIENT
  Sex: Male
  Weight: 85 kg

DRUGS (3)
  1. CLOLAR [Suspect]
     Indication: ACUTE LYMPHOCYTIC LEUKAEMIA
     Dosage: 50 MG/M2, QDX5
     Route: 042
     Dates: start: 20100428, end: 20100502
  2. CYCLOPHOSPHAMIDE [Suspect]
     Indication: ACUTE LYMPHOCYTIC LEUKAEMIA
     Dosage: 400 MG/M2, QDX5
     Route: 042
     Dates: start: 20100428, end: 20100502
  3. ETOPOSIDE [Suspect]
     Indication: ACUTE LYMPHOCYTIC LEUKAEMIA
     Dosage: 150 MG/M2, QDX5
     Route: 042
     Dates: start: 20100428, end: 20100502

REACTIONS (2)
  - FEBRILE NEUTROPENIA [None]
  - SEPSIS [None]
